FAERS Safety Report 6168937-3 (Version None)
Quarter: 2009Q2

REPORT INFORMATION
  Report Type: 
  Country: None (occurrence: None)
  Receive Date: 20090424
  Receipt Date: 20090424
  Transmission Date: 20091009
  Serious: Yes (Hospitalization)
  Sender: FDA-Public Use
  Company Number: None

PATIENT
  Age: 5 Year
  Sex: Male
  Weight: 26.6 kg

DRUGS (1)
  1. VANCOMYCIN [Suspect]
     Indication: CHEMOTHERAPY
     Dosage: 400 MG EVERY 8 HOURS IV DRIP
     Route: 041
     Dates: start: 20090421

REACTIONS (2)
  - INFUSION RELATED REACTION [None]
  - RESPIRATORY DISTRESS [None]
